FAERS Safety Report 10063575 (Version 1)
Quarter: 2014Q2

REPORT INFORMATION
  Report Type: Report from Study
  Country: NL (occurrence: NL)
  Receive Date: 20140407
  Receipt Date: 20140407
  Transmission Date: 20141212
  Serious: Yes (Other)
  Sender: FDA-Public Use
  Company Number: PHHY2014NL038449

PATIENT
  Sex: Male

DRUGS (3)
  1. SANDOSTATIN LAR [Suspect]
     Indication: ACROMEGALY
     Dosage: 30 MG / 2 ML, ONCE EVERY 4 WEEKS
     Route: 030
  2. SANDOSTATIN LAR [Suspect]
     Dosage: 30 MG / 2 ML, ONCE EVERY 4 WEEKS
     Route: 030
     Dates: start: 20140213
  3. SANDOSTATIN LAR [Suspect]
     Dosage: 30 MG / 2 ML, ONCE EVERY 4 WEEKS
     Route: 030
     Dates: start: 20140313

REACTIONS (3)
  - Paraplegia [Unknown]
  - Diabetes mellitus [Not Recovered/Not Resolved]
  - Hypertension [Not Recovered/Not Resolved]
